FAERS Safety Report 8328249-6 (Version None)
Quarter: 2012Q2

REPORT INFORMATION
  Report Type: 
  Country: None (occurrence: None)
  Receive Date: 20120502
  Receipt Date: 20120428
  Transmission Date: 20120825
  Serious: Yes (Death)
  Sender: FDA-Public Use
  Company Number: CN-ASTELLAS-2012JP003675

PATIENT
  Sex: Male

DRUGS (3)
  1. LEFLUNOMIDE [Suspect]
     Indication: LUPUS NEPHRITIS
     Dosage: 30 MG, UNKNOWN/D
     Route: 048
     Dates: start: 20120106, end: 20120323
  2. TACROLIMUS [Suspect]
     Indication: LUPUS NEPHRITIS
     Dosage: 4 MG, UNKNOWN/D
     Route: 048
     Dates: start: 20120106, end: 20120323
  3. STEROID [Concomitant]
     Dosage: 35 MG, UNKNOWN/D
     Route: 048

REACTIONS (1)
  - SUDDEN CARDIAC DEATH [None]
